FAERS Safety Report 25008313 (Version 2)
Quarter: 2025Q1

REPORT INFORMATION
  Report Type: Spontaneous
  Country: GB (occurrence: IN)
  Receive Date: 20250225
  Receipt Date: 20250226
  Transmission Date: 20250409
  Serious: Yes (Hospitalization, Other)
  Sender: SANOFI AVENTIS
  Company Number: IN-MLMSERVICE-20250214-PI412859-00338-1

PATIENT
  Age: 32 Year
  Sex: Male

DRUGS (3)
  1. ZOLPIDEM TARTRATE [Suspect]
     Active Substance: ZOLPIDEM TARTRATE
     Indication: Insomnia
     Dosage: FIVE?SIX TABLETS (50-60 MG) PER DAY
  2. PENTAZOCINE [Suspect]
     Active Substance: PENTAZOCINE
     Indication: Bone pain
     Dosage: ONE-TWO INJECTIONS PER DAY, 30MG PER INJECTION
  3. PENTAZOCINE [Suspect]
     Active Substance: PENTAZOCINE
     Indication: Analgesic therapy

REACTIONS (26)
  - Sickle cell anaemia with crisis [Recovering/Resolving]
  - Lacrimation increased [Recovering/Resolving]
  - Rhinorrhoea [Recovering/Resolving]
  - Venous thrombosis [Recovering/Resolving]
  - Wound [Recovering/Resolving]
  - Mydriasis [Recovering/Resolving]
  - Pain [Recovering/Resolving]
  - Tachycardia [Recovering/Resolving]
  - Skin hyperpigmentation [Recovering/Resolving]
  - Nausea [Recovering/Resolving]
  - Vomiting [Recovering/Resolving]
  - Muscle spasms [Recovering/Resolving]
  - Hyperhidrosis [Recovering/Resolving]
  - Tremor [Recovering/Resolving]
  - Skin ulcer [Recovering/Resolving]
  - Anaemia [Recovering/Resolving]
  - Generalised tonic-clonic seizure [Unknown]
  - Affective disorder [Recovering/Resolving]
  - Drug abuse [Recovering/Resolving]
  - Intentional product misuse [Recovering/Resolving]
  - Agitation [Recovering/Resolving]
  - Drug dependence [Recovering/Resolving]
  - Behaviour disorder [Recovering/Resolving]
  - Irritability [Recovering/Resolving]
  - Anxiety [Recovering/Resolving]
  - Sleep disorder [Recovering/Resolving]
